FAERS Safety Report 23412140 (Version 2)
Quarter: 2024Q3

REPORT INFORMATION
  Report Type: Spontaneous
  Country: US (occurrence: US)
  Receive Date: 20240117
  Receipt Date: 20240716
  Transmission Date: 20241016
  Serious: No
  Sender: NOVO NORDISK
  Company Number: US-NOVOPROD-1082585

PATIENT
  Sex: Female

DRUGS (2)
  1. OZEMPIC [Suspect]
     Active Substance: SEMAGLUTIDE
     Indication: Product used for unknown indication
     Dosage: 1 MG
     Route: 058
  2. INSULIN NOS [Concomitant]
     Active Substance: INSULIN NOS
     Indication: Product used for unknown indication
     Dosage: UNK

REACTIONS (14)
  - Swelling face [Unknown]
  - Headache [Unknown]
  - Feeling abnormal [Unknown]
  - Blood pressure decreased [Unknown]
  - Illness [Recovered/Resolved]
  - Eating disorder [Unknown]
  - Blood glucose decreased [Unknown]
  - Weight loss poor [Unknown]
  - Asthenia [Unknown]
  - Rash [Not Recovered/Not Resolved]
  - Dizziness [Unknown]
  - Extra dose administered [Unknown]
  - Intentional underdose [Unknown]
  - Wrong technique in product usage process [Unknown]
